FAERS Safety Report 24987557 (Version 1)
Quarter: 2025Q1

REPORT INFORMATION
  Report Type: Spontaneous
  Country: US (occurrence: US)
  Receive Date: 20250219
  Receipt Date: 20250219
  Transmission Date: 20250409
  Serious: Yes (Other)
  Sender: RIGEL PHARMACEUTICALS
  Company Number: US-RIGEL Pharmaceuticals INC-20250200090

PATIENT
  Age: 60 Year
  Sex: Male

DRUGS (2)
  1. GAVRETO [Suspect]
     Active Substance: PRALSETINIB
     Indication: Neuroendocrine tumour
     Dosage: 300 MG, QD
     Route: 048
     Dates: start: 20240802
  2. GAVRETO [Suspect]
     Active Substance: PRALSETINIB
     Indication: Carcinoid tumour

REACTIONS (4)
  - Liver transplant [Unknown]
  - Biopsy [Unknown]
  - Product prescribing issue [Unknown]
  - Off label use [Unknown]

NARRATIVE: CASE EVENT DATE: 20240802
